FAERS Safety Report 6419031-5 (Version None)
Quarter: 2009Q4

REPORT INFORMATION
  Report Type: 
  Country: None (occurrence: None)
  Receive Date: 20091028
  Receipt Date: 20091028
  Transmission Date: 20100525
  Serious: No
  Sender: FDA-Public Use
  Company Number: None

PATIENT
  Age: 52 Year
  Sex: Female
  Weight: 77.1115 kg

DRUGS (1)
  1. ZICAM MATRIXX INITIATIVES, INC. [Suspect]
     Indication: NASOPHARYNGITIS
     Dosage: ONCE A DAY 3 DAYS NASAL
     Route: 045
     Dates: start: 20090826, end: 20090828

REACTIONS (4)
  - ANOSMIA [None]
  - EYE IRRITATION [None]
  - EYE PAIN [None]
  - NASAL DISCOMFORT [None]
